FAERS Safety Report 6984398-6 (Version None)
Quarter: 2010Q3

REPORT INFORMATION
  Report Type: 
  Country: None (occurrence: None)
  Receive Date: 20100915
  Receipt Date: 20100719
  Transmission Date: 20110219
  Serious: No
  Sender: FDA-Public Use
  Company Number: US-MYLANLABS-2010S1011597

PATIENT
  Age: 29 Year
  Sex: Female

DRUGS (5)
  1. BUTORPHANOL TARTRATE NASAL SPRAY, USP [Suspect]
     Indication: MIGRAINE
     Route: 045
     Dates: start: 20100407
  2. TIZANIDINE HCL [Concomitant]
     Route: 048
  3. PROPOXYPHENE HCL AND ACETAMINOPHEN [Concomitant]
     Route: 048
  4. LYRICA [Concomitant]
  5. ACETAMINOPHEN W/ PROPOXYPHENE HCL [Concomitant]

REACTIONS (3)
  - DRUG EFFECT DECREASED [None]
  - MIGRAINE [None]
  - RHINALGIA [None]
